FAERS Safety Report 21299500 (Version 2)
Quarter: 2024Q3

REPORT INFORMATION
  Report Type: Report from Study
  Country: DE (occurrence: DE)
  Receive Date: 20220906
  Receipt Date: 20240718
  Transmission Date: 20241016
  Serious: Yes (Other)
  Sender: ROCHE
  Company Number: DE-ROCHE-2332587

PATIENT
  Age: 50 Year
  Sex: Female
  Weight: 82.0 kg

DRUGS (5)
  1. OCREVUS [Suspect]
     Active Substance: OCRELIZUMAB
     Indication: Primary progressive multiple sclerosis
     Route: 042
     Dates: start: 20180918
  2. OCREVUS [Suspect]
     Active Substance: OCRELIZUMAB
     Route: 042
     Dates: start: 20200820
  3. DRONABINOL [Concomitant]
     Active Substance: DRONABINOL
  4. LEVOTHYROXINE SODIUM [Concomitant]
     Active Substance: LEVOTHYROXINE SODIUM
  5. VITAMIN D3 [Concomitant]
     Active Substance: CHOLECALCIFEROL

REACTIONS (14)
  - Rash [Not Recovered/Not Resolved]
  - Urticaria [Not Recovered/Not Resolved]
  - Weight increased [Not Recovered/Not Resolved]
  - Contusion [Recovered/Resolved]
  - Fall [Unknown]
  - Hypoaesthesia [Unknown]
  - Haematoma [Recovered/Resolved]
  - Gastrointestinal infection [Recovered/Resolved]
  - Pain in extremity [Recovered/Resolved]
  - Antibody test negative [Not Recovered/Not Resolved]
  - Diplegia [Recovering/Resolving]
  - Multiple sclerosis [Not Recovered/Not Resolved]
  - Pain [Recovering/Resolving]
  - COVID-19 [Recovered/Resolved]

NARRATIVE: CASE EVENT DATE: 20180918
